FAERS Safety Report 4286310-X (Version None)
Quarter: 2004Q1

REPORT INFORMATION
  Report Type: 
  Country: None (occurrence: None)
  Receive Date: 20040116
  Receipt Date: 20030206
  Transmission Date: 20041129
  Serious: Yes (Hospitalization)
  Sender: FDA-Public Use
  Company Number: 331304

PATIENT
  Age: 39 Year
  Sex: Female
  Weight: 66.7 kg

DRUGS (2)
  1. VERSED [Suspect]
     Indication: SEDATION
     Dosage: 2 MG 1 PER ONE DOSE INTRAVENOUS
     Route: 042
     Dates: start: 20030123, end: 20030123
  2. NUBAIN [Suspect]
     Indication: SEDATION
     Dosage: 10 MG 1 PER ONE DOSE INTRAVENOUS
     Route: 042
     Dates: start: 20030123, end: 20030123

REACTIONS (10)
  - ABDOMINAL PAIN UPPER [None]
  - ADVERSE EVENT [None]
  - ASTHENIA [None]
  - CHEST PAIN [None]
  - DIZZINESS [None]
  - HEADACHE [None]
  - HYPOTENSION [None]
  - PYREXIA [None]
  - THROAT TIGHTNESS [None]
  - VOMITING [None]
